FAERS Safety Report 9261374 (Version 1)
Quarter: 2013Q2

REPORT INFORMATION
  Report Type: Spontaneous
  Country: US (occurrence: US)
  Receive Date: 20130429
  Receipt Date: 20130429
  Transmission Date: 20140414
  Serious: Yes (Other)
  Sender: FDA-Public Use
  Company Number: US-TEVA-400763USA

PATIENT
  Age: 72 Year
  Sex: Female
  Weight: 76.19 kg

DRUGS (5)
  1. FEXOFENADINE [Suspect]
     Indication: SEASONAL ALLERGY
     Dosage: 180 MILLIGRAM DAILY;
     Route: 048
     Dates: start: 2011, end: 20130422
  2. FEXOFENADINE [Suspect]
     Dosage: REGIMEN # 2
  3. TYLENOL ARTHRITIS [Concomitant]
  4. GLUCOSAMINE CHONDROITIN [Concomitant]
  5. ALPRAZOLAM [Concomitant]

REACTIONS (3)
  - Choking [Unknown]
  - Dyspnoea [Unknown]
  - Drug administered to patient of inappropriate age [Unknown]
